FAERS Safety Report 19156979 (Version 1)
Quarter: 2021Q2

REPORT INFORMATION
  Report Type: Report from Study
  Country: None (occurrence: US)
  Receive Date: 20210420
  Receipt Date: 20210420
  Transmission Date: 20210717
  Serious: No
  Sender: FDA-Public Use
  Company Number: US-BIOVITRUM-2021US0744

PATIENT
  Age: 8 Year
  Sex: Male

DRUGS (2)
  1. KINERET [Suspect]
     Active Substance: ANAKINRA
     Indication: AUTOINFLAMMATORY DISEASE
     Route: 058
     Dates: start: 20201002
  2. KINERET [Suspect]
     Active Substance: ANAKINRA
     Route: 058
     Dates: start: 20201002

REACTIONS (4)
  - Product dose omission issue [Unknown]
  - Off label use [Not Recovered/Not Resolved]
  - Polyp [Unknown]
  - Urticaria [Unknown]

NARRATIVE: CASE EVENT DATE: 20201002
